FAERS Safety Report 12989766 (Version 1)
Quarter: 2016Q4

REPORT INFORMATION
  Report Type: Spontaneous
  Country: IE (occurrence: IE)
  Receive Date: 20161201
  Receipt Date: 20161201
  Transmission Date: 20170207
  Serious: Yes (Other)
  Sender: FDA-Public Use
  Company Number: IE-BAXTER-2016BAX059096

PATIENT
  Age: 66 Year
  Sex: Female
  Weight: 74 kg

DRUGS (13)
  1. GLUCOSE 5% INTRAVENOUS INFUSION BP [Suspect]
     Active Substance: DEXTROSE
     Dosage: COMPOUNDED WITH PACLITAXEL
     Route: 042
     Dates: start: 20161103, end: 20161103
  2. PACLITAXEL. [Suspect]
     Active Substance: PACLITAXEL
     Indication: UTERINE CANCER
     Route: 042
     Dates: start: 20161103, end: 20161103
  3. CHLORPHENAMINE [Suspect]
     Active Substance: CHLORPHENIRAMINE MALEATE
     Indication: PREMEDICATION
     Dosage: 30 MINUTES PRE ADMINISTRATION OF PACLITAXEL
     Route: 042
     Dates: start: 201611
  4. GLUCOSE 5% INTRAVENOUS INFUSION BP [Suspect]
     Active Substance: DEXTROSE
     Indication: MEDICATION DILUTION
     Dosage: COMPOUNDED WITH CARBOPLATIN
     Route: 042
  5. RANITIDINE. [Suspect]
     Active Substance: RANITIDINE
     Dosage: 6 HOURS PRE ADMINISTRATION OF PACLITAXEL
     Route: 042
     Dates: start: 201611
  6. GRANISETRON [Suspect]
     Active Substance: GRANISETRON
     Indication: PREMEDICATION
     Dosage: 12 HOURS PRE ADMINISTRATION OF PACLITAXEL
     Route: 048
     Dates: start: 201611
  7. GLUCOSE 5% INTRAVENOUS INFUSION BP [Suspect]
     Active Substance: DEXTROSE
     Dosage: COMPOUNDED WITH PACLITAXEL (RE-CHALLENGED)
     Route: 042
     Dates: start: 20161103, end: 20161103
  8. RANITIDINE. [Suspect]
     Active Substance: RANITIDINE
     Indication: PREMEDICATION
     Dosage: 12 HOURS PRE ADMINISTRATION OF PACLITAXEL
     Route: 042
     Dates: start: 201611
  9. CARBOPLATIN. [Suspect]
     Active Substance: CARBOPLATIN
     Indication: PRODUCT USED FOR UNKNOWN INDICATION
     Route: 042
  10. GRANISETRON [Suspect]
     Active Substance: GRANISETRON
     Dosage: 6 HOURS PRE ADMINISTRATION OF PACLITAXEL
     Route: 048
     Dates: start: 201611
  11. PACLITAXEL. [Suspect]
     Active Substance: PACLITAXEL
     Dosage: RE-CHALLENGED
     Route: 042
     Dates: start: 20161103
  12. DEXAMETHAZONE [Suspect]
     Active Substance: DEXAMETHASONE
     Indication: PREMEDICATION
     Dosage: 12 HOURS PRE ADMINISTRATION OF PACLITAXEL
     Route: 065
     Dates: start: 201611
  13. DEXAMETHAZONE [Suspect]
     Active Substance: DEXAMETHASONE
     Dosage: 6 HOURS PRE ADMINISTRATION OF PACLITAXEL
     Route: 065
     Dates: start: 201611

REACTIONS (2)
  - Flushing [Recovered/Resolved]
  - Bronchospasm [Recovered/Resolved]

NARRATIVE: CASE EVENT DATE: 20161103
